FAERS Safety Report 15180896 (Version 2)
Quarter: 2018Q4

REPORT INFORMATION
  Report Type: Spontaneous
  Country: DE (occurrence: DE)
  Receive Date: 20180723
  Receipt Date: 20181009
  Transmission Date: 20190204
  Serious: Yes (Death, Hospitalization, Other)
  Sender: FDA-Public Use
  Company Number: PHHY2015DE178104

PATIENT
  Age: 74 Year
  Sex: Male

DRUGS (34)
  1. 5-FLUOROURACIL [Suspect]
     Active Substance: FLUOROURACIL
     Dosage: 675 MG, BIW
     Route: 040
     Dates: start: 20151014, end: 20151118
  2. NADIXA [Concomitant]
     Indication: ERYTHEMA
     Dosage: 99 ML, UNK
     Route: 065
  3. OXALIPLATIN. [Suspect]
     Active Substance: OXALIPLATIN
     Dosage: 120 MG, BIW
     Route: 042
     Dates: start: 20160111, end: 20160111
  4. DERMATOP [Concomitant]
     Active Substance: PREDNICARBATE
     Indication: ERYTHEMA
     Dosage: 99 ML, UNK
     Route: 065
  5. OXALIPLATIN. [Suspect]
     Active Substance: OXALIPLATIN
     Dosage: 140 MG, BIW
     Route: 042
     Dates: start: 20151014
  6. OXALIPLATIN. [Suspect]
     Active Substance: OXALIPLATIN
     Dosage: 140 MG, BIW
     Route: 042
     Dates: start: 20151118
  7. OXALIPLATIN. [Suspect]
     Active Substance: OXALIPLATIN
     Dosage: 140 MG, BIW
     Route: 042
     Dates: start: 20151221
  8. 5-FLUOROURACIL [Suspect]
     Active Substance: FLUOROURACIL
     Dosage: 675 MG, BIW
     Route: 040
     Dates: start: 20151118, end: 20151118
  9. OXALIPLATIN. [Suspect]
     Active Substance: OXALIPLATIN
     Indication: COLORECTAL CANCER
     Dosage: 140 MG, BIW
     Route: 042
     Dates: start: 20150923
  10. OXALIPLATIN. [Suspect]
     Active Substance: OXALIPLATIN
     Dosage: 3400 MG, BIW
     Route: 041
     Dates: start: 20160111, end: 20160113
  11. 5-FLUOROURACIL [Suspect]
     Active Substance: FLUOROURACIL
     Dosage: 3900 MG, BIW
     Route: 041
     Dates: start: 20151202, end: 20151223
  12. FOLINIC ACID [Concomitant]
     Active Substance: LEUCOVORIN
     Dosage: 670 MG, BIW
     Route: 042
     Dates: start: 20151014, end: 20151018
  13. ATOSIL [Concomitant]
     Active Substance: PROMETHAZINE HYDROCHLORIDE
     Indication: HYPERTENSION
     Dosage: 25 MG, UNK
     Route: 042
  14. 5-FLUOROURACIL [Suspect]
     Active Substance: FLUOROURACIL
     Dosage: 675 MG, BIW
     Route: 040
     Dates: start: 20151028, end: 20151028
  15. 5-FLUOROURACIL [Suspect]
     Active Substance: FLUOROURACIL
     Dosage: 575 MG, BIW
     Route: 040
     Dates: start: 20160111, end: 20160111
  16. BEVACIZUMAB. [Suspect]
     Active Substance: BEVACIZUMAB
     Dosage: 425 MG, BIW
     Route: 042
     Dates: start: 20160111, end: 20160111
  17. LOPERAMID [Concomitant]
     Active Substance: LOPERAMIDE
     Indication: DIARRHOEA
     Dosage: 99 MG, UNK
     Route: 048
  18. FOLINIC ACID [Concomitant]
     Active Substance: LEUCOVORIN
     Indication: COLORECTAL CANCER
     Dosage: 400-670 MG 400 MG ONLY ON 23-SEP-2015
     Route: 042
     Dates: start: 20150923, end: 20160111
  19. MCP [Concomitant]
     Active Substance: METOCLOPRAMIDE HYDROCHLORIDE
     Indication: NAUSEA
     Dosage: 10 MG, UNK
     Route: 048
  20. OXALIPLATIN. [Suspect]
     Active Substance: OXALIPLATIN
     Dosage: 140 MG, BIW
     Route: 040
     Dates: start: 20151028
  21. 5-FLUOROURACIL [Suspect]
     Active Substance: FLUOROURACIL
     Indication: COLORECTAL CANCER
     Dosage: 650 MG, BIW
     Route: 040
     Dates: start: 20150923, end: 20150923
  22. 5-FLUOROURACIL [Suspect]
     Active Substance: FLUOROURACIL
     Dosage: 3400 MG, BIW
     Route: 041
     Dates: start: 20160111, end: 20160113
  23. CLEXANE [Concomitant]
     Active Substance: ENOXAPARIN SODIUM
     Indication: THROMBOSIS
     Dosage: 0.2 ML, QD
     Route: 058
     Dates: start: 20160203, end: 20160213
  24. CIPROBAY [Concomitant]
     Active Substance: CIPROFLOXACIN
     Indication: URINARY TRACT INFECTION
     Dosage: 500 MG, QD
     Route: 048
     Dates: start: 20160209, end: 20160221
  25. TAVOR (LORAZEPAM) [Concomitant]
     Active Substance: LORAZEPAM
     Indication: SURGERY
     Dosage: 1 MG, UNK
     Route: 048
  26. OXALIPLATIN. [Suspect]
     Active Substance: OXALIPLATIN
     Dosage: 140 MG, BIW
     Route: 042
     Dates: start: 20151202
  27. 5-FLUOROURACIL [Suspect]
     Active Substance: FLUOROURACIL
     Dosage: 4000 MG, BIW
     Route: 041
     Dates: start: 20150923, end: 20151120
  28. PANTOZOL [Concomitant]
     Active Substance: PANTOPRAZOLE SODIUM
     Indication: PRODUCT USED FOR UNKNOWN INDICATION
     Dosage: 40 MG, UNK
     Route: 048
  29. METOPROLOL. [Concomitant]
     Active Substance: METOPROLOL
     Indication: PRODUCT USED FOR UNKNOWN INDICATION
     Dosage: 50 MG, QD
     Route: 048
     Dates: start: 20160129, end: 20160203
  30. CLONIDIN [Concomitant]
     Active Substance: CLONIDINE
     Indication: HYPERTENSION
     Dosage: 0.15 MG, UNK
     Route: 042
  31. PANITUMUMAB [Concomitant]
     Active Substance: PANITUMUMAB
     Indication: COLORECTAL CANCER
     Dosage: 540 MG, ONCE/SINGLE
     Route: 042
  32. 5-FLUOROURACIL [Suspect]
     Active Substance: FLUOROURACIL
     Dosage: 650 MG, BIW
     Route: 040
     Dates: start: 20151202, end: 20151221
  33. BEVACIZUMAB. [Suspect]
     Active Substance: BEVACIZUMAB
     Indication: COLORECTAL CANCER
     Dosage: 450 MG, BIW
     Route: 042
     Dates: start: 20151118, end: 20151118
  34. ASPIRIN. [Concomitant]
     Active Substance: ASPIRIN
     Indication: CEREBROVASCULAR DISORDER
     Dosage: 100 MG, QD
     Route: 048
     Dates: start: 2009, end: 20160313

REACTIONS (15)
  - Anorectal infection [Not Recovered/Not Resolved]
  - Haemorrhage [Unknown]
  - Ascites [Not Recovered/Not Resolved]
  - Faecaloma [Recovered/Resolved]
  - Proctalgia [Not Recovered/Not Resolved]
  - Subileus [Recovered/Resolved]
  - Abscess [Fatal]
  - Haemoglobin decreased [Not Recovered/Not Resolved]
  - Wound infection [Not Recovered/Not Resolved]
  - Hypertension [Not Recovered/Not Resolved]
  - Wound haemorrhage [Not Recovered/Not Resolved]
  - Faecaloma [Recovered/Resolved]
  - Pyrexia [Not Recovered/Not Resolved]
  - Anaemia [Unknown]
  - Delirium [Unknown]

NARRATIVE: CASE EVENT DATE: 20151130
